FAERS Safety Report 7185914-4 (Version None)
Quarter: 2010Q4

REPORT INFORMATION
  Report Type: 
  Country: None (occurrence: None)
  Receive Date: 20101222
  Receipt Date: 20100611
  Transmission Date: 20110411
  Serious: Yes (Hospitalization)
  Sender: FDA-Public Use
  Company Number: US-AMGEN-KDL418093

PATIENT

DRUGS (2)
  1. ENBREL [Suspect]
     Indication: RHEUMATOID ARTHRITIS
     Dosage: 25 MG, 2 TIMES/WK
     Route: 058
     Dates: start: 20041101
  2. METHOTREXATE [Concomitant]
     Dosage: 25 MG, QWK
     Route: 058

REACTIONS (3)
  - HERPES ZOSTER [None]
  - MENINGITIS [None]
  - RHEUMATOID ARTHRITIS [None]
